FAERS Safety Report 24795196 (Version 1)
Quarter: 2024Q4

REPORT INFORMATION
  Report Type: Spontaneous
  Country: US (occurrence: US)
  Receive Date: 20241231
  Receipt Date: 20241231
  Transmission Date: 20250115
  Serious: No
  Sender: TAIHO ONCOLOGY INC
  Company Number: US-TAIHOP-2024-012246

PATIENT

DRUGS (1)
  1. LYTGOBI [Suspect]
     Active Substance: FUTIBATINIB
     Indication: Bile duct cancer
     Dosage: DOSE, FREQUENCY, FORM STRENGTH WERE UNKNOWN
     Route: 048

REACTIONS (2)
  - Onychomadesis [Unknown]
  - Product packaging difficult to open [Unknown]
